FAERS Safety Report 6245058-2 (Version None)
Quarter: 2009Q2

REPORT INFORMATION
  Report Type: 
  Country: None (occurrence: None)
  Receive Date: 20090623
  Receipt Date: 20090623
  Transmission Date: 20091009
  Serious: Yes (Hospitalization)
  Sender: FDA-Public Use
  Company Number: None

PATIENT
  Sex: Female
  Weight: 54.4316 kg

DRUGS (2)
  1. BENZONATATE [Suspect]
     Indication: COUGH
     Dosage: 1 TABLET EVERY 12 HOURS PO; ONCE
     Route: 048
     Dates: start: 20090512, end: 20090512
  2. BENZONATATE [Suspect]
     Indication: PYREXIA
     Dosage: 1 TABLET EVERY 12 HOURS PO; ONCE
     Route: 048
     Dates: start: 20090512, end: 20090512

REACTIONS (5)
  - DEPRESSED LEVEL OF CONSCIOUSNESS [None]
  - DIARRHOEA [None]
  - FEELING OF DESPAIR [None]
  - NAUSEA [None]
  - VOMITING [None]
